FAERS Safety Report 11193676 (Version 1)
Quarter: 2015Q2

REPORT INFORMATION
  Report Type: Spontaneous
  Country: US (occurrence: US)
  Receive Date: 20150616
  Receipt Date: 20150616
  Transmission Date: 20150821
  Serious: No
  Sender: FDA-Public Use
  Company Number: US-LPDUSPRD-20140425

PATIENT
  Age: 52 Year
  Sex: Female

DRUGS (3)
  1. CYANOCOBALAMIN INJECTION, USP (0032-25) [Suspect]
     Active Substance: CYANOCOBALAMIN
     Dosage: 1 ML, DELTOID, MONTHLY
     Route: 051
     Dates: start: 20140612
  2. BIRTH CONTROL PILL (UNSPECIFIED) [Concomitant]
  3. ADIPEX-P [Concomitant]
     Active Substance: PHENTERMINE HYDROCHLORIDE
     Route: 065

REACTIONS (3)
  - Off label use [Unknown]
  - Pain in extremity [Not Recovered/Not Resolved]
  - Periodic limb movement disorder [Not Recovered/Not Resolved]

NARRATIVE: CASE EVENT DATE: 20140612
